FAERS Safety Report 12297776 (Version 4)
Quarter: 2016Q2

REPORT INFORMATION
  Report Type: Spontaneous
  Country: US (occurrence: US)
  Receive Date: 20160422
  Receipt Date: 20160606
  Transmission Date: 20160815
  Serious: No
  Sender: FDA-Public Use
  Company Number: US-009507513-1604USA014556

PATIENT
  Age: 44 Year
  Sex: Female

DRUGS (2)
  1. MK-0000 (111) [Suspect]
     Active Substance: INVESTIGATIONAL PRODUCT
     Dosage: UNK
     Route: 059
     Dates: start: 20160413
  2. MK-0000 (111) [Suspect]
     Active Substance: INVESTIGATIONAL PRODUCT
     Dosage: UNK
     Route: 059
     Dates: start: 20160413, end: 20160413

REACTIONS (3)
  - Device difficult to use [Recovered/Resolved]
  - Discomfort [Unknown]
  - Product quality issue [Unknown]

NARRATIVE: CASE EVENT DATE: 20160413
